FAERS Safety Report 8400886 (Version 2)
Quarter: 2013Q1

REPORT INFORMATION
  Report Type: Spontaneous
  Country: US (occurrence: US)
  Receive Date: 20120210
  Receipt Date: 20130219
  Transmission Date: 20140127
  Serious: No
  Sender: FDA-Public Use
  Company Number: US-BRISTOL-MYERS SQUIBB COMPANY-16252108

PATIENT
  Age: 90 Year
  Sex: Female

DRUGS (9)
  1. ORENCIA FOR INJ [Suspect]
     Indication: RHEUMATOID ARTHRITIS
     Dosage: LAST DOSE:17NOV2011?THERAPY DURATION:20 PLUS YEARS
     Route: 042
  2. METHOTREXATE [Concomitant]
  3. ALEVE [Concomitant]
  4. TYLENOL [Concomitant]
  5. VITAMINS [Concomitant]
  6. CALCIUM [Concomitant]
  7. PLAVIX [Concomitant]
  8. EFFEXOR [Concomitant]
  9. TEMAZEPAM [Concomitant]

REACTIONS (3)
  - Fatigue [Unknown]
  - Rheumatoid arthritis [Not Recovered/Not Resolved]
  - Cough [Unknown]
